FAERS Safety Report 7827115-X (Version None)
Quarter: 2011Q4

REPORT INFORMATION
  Report Type: 
  Country: None (occurrence: None)
  Receive Date: 20111020
  Receipt Date: 20111007
  Transmission Date: 20120403
  Serious: Yes (Hospitalization, Other)
  Sender: FDA-Public Use
  Company Number: US-BAYER-2011-028459

PATIENT
  Age: 24 Year
  Sex: Female
  Weight: 73 kg

DRUGS (4)
  1. LOVENOX [Concomitant]
     Indication: ENDOMETRIOSIS
  2. LOESTRIN 1.5/30 [Concomitant]
  3. YAZ [Suspect]
     Indication: CONTRACEPTION
     Dosage: UNK
     Route: 048
     Dates: start: 20091201, end: 20100501
  4. ELMIRON [Concomitant]
     Indication: CYSTITIS INTERSTITIAL
     Dosage: DAILY DOSE 100 MG
     Route: 048
     Dates: start: 20060101

REACTIONS (3)
  - CHOLECYSTITIS CHRONIC [None]
  - PULMONARY EMBOLISM [None]
  - GALLBLADDER DISORDER [None]
